FAERS Safety Report 7074141-7 (Version None)
Quarter: 2010Q4

REPORT INFORMATION
  Report Type: 
  Country: None (occurrence: None)
  Receive Date: 20101029
  Receipt Date: 20101025
  Transmission Date: 20110411
  Serious: Yes (Other)
  Sender: FDA-Public Use
  Company Number: JP-PFIZER INC-2010135510

PATIENT
  Age: 37 Year
  Sex: Female

DRUGS (1)
  1. ZITHROMAX [Suspect]
     Dosage: 250 MG, 2X/DAY
     Route: 048

REACTIONS (1)
  - COLITIS ISCHAEMIC [None]
